FAERS Safety Report 15817983 (Version 2)
Quarter: 2019Q1

REPORT INFORMATION
  Report Type: Spontaneous
  Country: US (occurrence: US)
  Receive Date: 20190113
  Receipt Date: 20190322
  Transmission Date: 20190417
  Serious: No
  Sender: FDA-Public Use
  Company Number: US-COOPERSURGICAL, INC.-US-2018CPS018564

PATIENT
  Age: 33 Year
  Sex: Female
  Weight: 57.01 kg

DRUGS (1)
  1. PARAGARD T 380A [Suspect]
     Active Substance: COPPER
     Indication: CONTRACEPTION
     Dosage: UNK
     Route: 015
     Dates: start: 20170113, end: 20180202

REACTIONS (4)
  - Pain [Recovered/Resolved]
  - Device dislocation [Recovered/Resolved]
  - Menorrhagia [Recovered/Resolved]
  - Muscle spasms [Recovered/Resolved]

NARRATIVE: CASE EVENT DATE: 20180130
